FAERS Safety Report 18517202 (Version 4)
Quarter: 2020Q4

REPORT INFORMATION
  Report Type: Spontaneous
  Country: RU (occurrence: RU)
  Receive Date: 20201118
  Receipt Date: 20201230
  Transmission Date: 20210114
  Serious: Yes (Death, Life-Threatening, Hospitalization, Other)
  Sender: FDA-Public Use
  Company Number: RU-PFIZER INC-2020454525

PATIENT
  Age: 81 Year
  Sex: Male
  Weight: 75 kg

DRUGS (5)
  1. HYDROXYCHLOROQUINE [Concomitant]
     Active Substance: HYDROXYCHLOROQUINE
     Dosage: 200 MG, 2X/DAY
     Dates: start: 202005, end: 20200524
  2. AZITHROMYCIN ANHYDROUS. [Concomitant]
     Active Substance: AZITHROMYCIN ANHYDROUS
     Indication: COVID-19
     Dosage: 500 MG, 1X/DAY
     Dates: start: 20200517, end: 20200524
  3. TOFACITINIB CITRATE [Suspect]
     Active Substance: TOFACITINIB CITRATE
     Indication: COVID-19
     Dosage: 5 MG, 2X/DAY
     Route: 048
     Dates: start: 20200522, end: 20200528
  4. TOFACITINIB CITRATE [Suspect]
     Active Substance: TOFACITINIB CITRATE
     Indication: COVID-19 PNEUMONIA
  5. HYDROXYCHLOROQUINE [Concomitant]
     Active Substance: HYDROXYCHLOROQUINE
     Indication: COVID-19
     Dosage: 400 MG, 2X/DAY
     Dates: start: 20200517, end: 202005

REACTIONS (4)
  - COVID-19 pneumonia [Fatal]
  - COVID-19 [Fatal]
  - Drug ineffective for unapproved indication [Unknown]
  - Off label use [Unknown]

NARRATIVE: CASE EVENT DATE: 202005
